FAERS Safety Report 6880214-1 (Version None)
Quarter: 2010Q2

REPORT INFORMATION
  Report Type: 
  Country: None (occurrence: None)
  Receive Date: 20100630
  Receipt Date: 20090609
  Transmission Date: 20101027
  Serious: Yes (Other)
  Sender: FDA-Public Use
  Company Number: 2008099020

PATIENT
  Age: 3 Year
  Sex: Female
  Weight: 22.7 kg

DRUGS (7)
  1. ZITHROMAX [Suspect]
     Indication: RESPIRATORY TRACT INFECTION
     Dates: start: 20081105
  2. ZYRTEC [Suspect]
     Indication: URTICARIA
     Dosage: 5 ML, ORAL; 1 TEASPOON, ONCE, ORAL
     Route: 048
     Dates: start: 20081108, end: 20081108
  3. ZYRTEC [Suspect]
     Indication: URTICARIA
     Dosage: 5 ML, ORAL; 1 TEASPOON, ONCE, ORAL
     Route: 048
     Dates: start: 20081108, end: 20081108
  4. DECADRON [Suspect]
     Indication: URTICARIA
     Dosage: 1 MG; UNSPECIFIED INJECTION, OTHER
     Dates: start: 20081108
  5. DECADRON [Suspect]
     Indication: URTICARIA
     Dosage: 1 MG; UNSPECIFIED INJECTION, OTHER
     Dates: start: 20081108
  6. SINGULAIR [Suspect]
     Indication: RESPIRATORY TRACT INFECTION
     Dates: start: 20081105
  7. XYZAL [Suspect]
     Indication: DRUG USE FOR UNKNOWN INDICATION
     Dates: start: 20081105

REACTIONS (5)
  - ANAPHYLACTIC SHOCK [None]
  - EYE SWELLING [None]
  - RASH [None]
  - URTICARIA [None]
  - WRONG DRUG ADMINISTERED [None]
